FAERS Safety Report 8992755 (Version 1)
Quarter: 2013Q1

REPORT INFORMATION
  Report Type: Report from Study
  Country: IT (occurrence: IT)
  Receive Date: 20130102
  Receipt Date: 20130102
  Transmission Date: 20140127
  Serious: Yes (Death)
  Sender: FDA-Public Use
  Company Number: IT-ROCHE-1174404

PATIENT
  Age: 77 Year
  Sex: Male

DRUGS (3)
  1. ALTEPLASE [Suspect]
     Indication: MYOCARDIAL INFARCTION
     Route: 042
  2. PERSANTIN RETARD [Concomitant]
     Route: 048
  3. ASA [Concomitant]
     Route: 048

REACTIONS (2)
  - Cardiogenic shock [Fatal]
  - Mesenteric artery embolism [Fatal]
